FAERS Safety Report 18587702 (Version 1)
Quarter: 2020Q4

REPORT INFORMATION
  Report Type: Spontaneous
  Country: US (occurrence: US)
  Receive Date: 20201207
  Receipt Date: 20201207
  Transmission Date: 20210114
  Serious: No
  Sender: FDA-Public Use
  Company Number: US-NOVOPROD-718464

PATIENT
  Sex: Male

DRUGS (2)
  1. NOVOLIN 70/30 [Suspect]
     Active Substance: INSULIN HUMAN
     Dosage: 70 UNITS
     Route: 058
     Dates: start: 2000
  2. NOVOLIN 70/30 [Suspect]
     Active Substance: INSULIN HUMAN
     Indication: TYPE 2 DIABETES MELLITUS
     Dosage: 45-50 UNITS
     Route: 058
     Dates: start: 2000

REACTIONS (7)
  - Glycosylated haemoglobin increased [Unknown]
  - Drug ineffective [Unknown]
  - Deposit eye [Unknown]
  - Blood glucose increased [Unknown]
  - Nasopharyngitis [Unknown]
  - Product quality issue [Unknown]
  - Hypoacusis [Unknown]
